FAERS Safety Report 7433864-8 (Version None)
Quarter: 2011Q2

REPORT INFORMATION
  Report Type: 
  Country: None (occurrence: None)
  Receive Date: 20110425
  Receipt Date: 20110414
  Transmission Date: 20111010
  Serious: No
  Sender: FDA-Public Use
  Company Number: US-BIOGENIDEC-2011BI014578

PATIENT
  Sex: Female

DRUGS (5)
  1. AVONEX [Concomitant]
     Route: 030
     Dates: start: 20090407, end: 20090629
  2. TYSABRI [Suspect]
     Route: 042
     Dates: start: 20090729, end: 20100408
  3. AVONEX [Concomitant]
     Indication: MULTIPLE SCLEROSIS
     Route: 030
     Dates: start: 20100518, end: 20101019
  4. TYSABRI [Suspect]
     Route: 042
     Dates: start: 20080822, end: 20090311
  5. TYSABRI [Suspect]
     Indication: MULTIPLE SCLEROSIS
     Route: 042
     Dates: start: 20101217

REACTIONS (1)
  - CYSTITIS [None]
